FAERS Safety Report 9324561 (Version 2)
Quarter: 2013Q4

REPORT INFORMATION
  Report Type: Spontaneous
  Country: US (occurrence: US)
  Receive Date: 20130603
  Receipt Date: 20131003
  Transmission Date: 20140711
  Serious: Yes (Hospitalization)
  Sender: FDA-Public Use
  Company Number: US-B.I. PHARMACEUTICALS,INC./RIDGEFIELD-2013-BI-15159BP

PATIENT
  Age: 79 Year
  Sex: Male
  Weight: 69.28 kg

DRUGS (11)
  1. PRADAXA [Suspect]
     Indication: ATRIAL FIBRILLATION
     Dosage: 300 MG
     Dates: start: 20110824, end: 20120109
  2. LISINOPRIL [Concomitant]
     Indication: HYPERTENSION
     Dosage: 20 MG
  3. METOPROLOL XL [Concomitant]
     Indication: HYPERTENSION
     Dosage: 25 MG
  4. CLARITIN [Concomitant]
     Dosage: 10 MG
  5. FLONASE [Concomitant]
  6. IMMUTROL [Concomitant]
     Indication: IMMUNE ENHANCEMENT THERAPY
  7. COQ10 [Concomitant]
  8. FISH OIL [Concomitant]
  9. EQUATE MVI [Concomitant]
  10. NIACINAMIDE [Concomitant]
     Indication: PROPHYLAXIS
  11. SODIUM CHLORIDE [Concomitant]

REACTIONS (4)
  - Pulmonary haemorrhage [Unknown]
  - Pulmonary congestion [Not Recovered/Not Resolved]
  - Haemoptysis [Recovered/Resolved]
  - Epistaxis [Unknown]
